FAERS Safety Report 13282397 (Version 4)
Quarter: 2017Q3

REPORT INFORMATION
  Report Type: Spontaneous
  Country: US (occurrence: US)
  Receive Date: 20170301
  Receipt Date: 20170912
  Transmission Date: 20171127
  Serious: Yes (Hospitalization)
  Sender: FDA-Public Use
  Company Number: US-UNITED THERAPEUTICS-UNT-2017-002593

PATIENT
  Age: 61 Year
  Sex: Female
  Weight: 54.42 kg

DRUGS (4)
  1. REMODULIN [Suspect]
     Active Substance: TREPROSTINIL
     Dosage: 0.011 ?G/KG, CONTINUING
     Route: 041
  2. REMODULIN [Suspect]
     Active Substance: TREPROSTINIL
     Dosage: 0.111 UNK, UNK
     Route: 041
     Dates: start: 20110520
  3. ADCIRCA [Concomitant]
     Active Substance: TADALAFIL
     Indication: PRODUCT USED FOR UNKNOWN INDICATION
  4. REMODULIN [Suspect]
     Active Substance: TREPROSTINIL
     Indication: PULMONARY HYPERTENSION
     Dosage: 0.111 ?G/KG, CONTINUING
     Route: 041
     Dates: start: 20110511

REACTIONS (5)
  - Device related infection [Unknown]
  - Vomiting [Unknown]
  - Staphylococcal infection [Unknown]
  - Diarrhoea [Unknown]
  - Pneumonia [Unknown]

NARRATIVE: CASE EVENT DATE: 201702
